FAERS Safety Report 10483993 (Version 2)
Quarter: 2014Q4

REPORT INFORMATION
  Report Type: Report from Study
  Country: TW (occurrence: TW)
  Receive Date: 20140930
  Receipt Date: 20141106
  Transmission Date: 20150528
  Serious: Yes (Hospitalization)
  Sender: FDA-Public Use
  Company Number: TW-SA-2014SA127649

PATIENT
  Age: 68 Year
  Sex: Female
  Weight: 65 kg

DRUGS (11)
  1. ACETYLSALICYLIC ACID [Suspect]
     Active Substance: ASPIRIN
     Indication: ACUTE CORONARY SYNDROME
     Route: 065
     Dates: start: 20020930
  2. CLOPIDOGREL BISULFATE. [Suspect]
     Active Substance: CLOPIDOGREL BISULFATE
     Indication: ACUTE CORONARY SYNDROME
     Route: 065
     Dates: start: 200910
  3. MUCAINE [Concomitant]
     Active Substance: ALUMINUM HYDROXIDE\MAGNESIUM HYDROXIDE\SIMETHICONE
     Dosage: TID PRN
     Route: 048
     Dates: start: 20140710
  4. NITROSTAT [Concomitant]
     Active Substance: NITROGLYCERIN
     Dates: start: 20140428
  5. TRADJENTA [Concomitant]
     Active Substance: LINAGLIPTIN
     Route: 048
     Dates: start: 20140710
  6. HERBESSER [Concomitant]
     Active Substance: DILTIAZEM HYDROCHLORIDE
     Route: 048
     Dates: start: 20140428
  7. NOVOMIX [Concomitant]
     Active Substance: INSULIN ASPART
     Route: 058
     Dates: start: 20140710
  8. FUROSEMIDE. [Concomitant]
     Active Substance: FUROSEMIDE
     Route: 048
     Dates: start: 20140428
  9. CONCOR [Concomitant]
     Active Substance: BISOPROLOL FUMARATE
     Route: 048
     Dates: start: 20140428
  10. FEBURIC [Concomitant]
     Active Substance: FEBUXOSTAT
     Route: 048
     Dates: start: 20140710
  11. SIGMART [Concomitant]
     Active Substance: NICORANDIL
     Route: 048
     Dates: start: 20140428

REACTIONS (2)
  - Urosepsis [Recovered/Resolved]
  - Urinary tract infection [Recovered/Resolved]

NARRATIVE: CASE EVENT DATE: 20140906
